FAERS Safety Report 20906434 (Version 3)
Quarter: 2022Q3

REPORT INFORMATION
  Report Type: Spontaneous
  Country: US (occurrence: US)
  Receive Date: 20220602
  Receipt Date: 20220825
  Transmission Date: 20221027
  Serious: No
  Sender: FDA-Public Use
  Company Number: US-PFIZER INC-202200787759

PATIENT
  Age: 53 Year
  Sex: Female
  Weight: 63.05 kg

DRUGS (1)
  1. PAXLOVID [Suspect]
     Active Substance: NIRMATRELVIR\RITONAVIR
     Indication: COVID-19 treatment
     Dosage: 3 TABLETS 12 HOURS APART
     Route: 048
     Dates: start: 20220531

REACTIONS (3)
  - Dizziness [Not Recovered/Not Resolved]
  - Vertigo positional [Unknown]
  - Malaise [Not Recovered/Not Resolved]

NARRATIVE: CASE EVENT DATE: 20220531
